FAERS Safety Report 7563680-8 (Version None)
Quarter: 2011Q2

REPORT INFORMATION
  Report Type: 
  Country: None (occurrence: None)
  Receive Date: 20110622
  Receipt Date: 20110607
  Transmission Date: 20111010
  Serious: Yes (Hospitalization)
  Sender: FDA-Public Use
  Company Number: US-ROCHE-784061

PATIENT
  Sex: Female

DRUGS (2)
  1. PACLITAXEL [Suspect]
     Indication: BREAST CANCER
     Dosage: IV OVER 30 MIN ON DAYS 1, 8 AND 15
     Route: 042
     Dates: start: 20110113
  2. BEVACIZUMAB [Suspect]
     Indication: BREAST CANCER
     Dosage: OVER 30-90 MINUTES ON DAYS 1 AND 15
     Route: 042
     Dates: start: 20110113

REACTIONS (9)
  - LARGE INTESTINE PERFORATION [None]
  - PERITONITIS [None]
  - HYPONATRAEMIA [None]
  - LOWER GASTROINTESTINAL HAEMORRHAGE [None]
  - ANAEMIA [None]
  - BACTERAEMIA [None]
  - HYPOALBUMINAEMIA [None]
  - HYPOCALCAEMIA [None]
  - PNEUMOPERITONEUM [None]
